FAERS Safety Report 9392012 (Version 2)
Quarter: 2013Q3

REPORT INFORMATION
  Report Type: Spontaneous
  Country: US (occurrence: US)
  Receive Date: 20130709
  Receipt Date: 20130813
  Transmission Date: 20140515
  Serious: Yes (Hospitalization)
  Sender: FDA-Public Use
  Company Number: CHPA2013US010741

PATIENT
  Age: 4 Year
  Sex: Female

DRUGS (1)
  1. TRIAMINIC NIGHT TIME COLD + COUGH [Suspect]
     Dosage: UNK, UNK
     Route: 048
     Dates: start: 20130703, end: 20130703

REACTIONS (1)
  - Accidental exposure to product by child [Recovering/Resolving]
